FAERS Safety Report 7593769-9 (Version None)
Quarter: 2011Q3

REPORT INFORMATION
  Report Type: 
  Country: None (occurrence: None)
  Receive Date: 20110706
  Receipt Date: 20110623
  Transmission Date: 20111222
  Serious: Yes (Other)
  Sender: FDA-Public Use
  Company Number: PHHY2011AU28765

PATIENT
  Sex: Male
  Weight: 90 kg

DRUGS (2)
  1. EXJADE [Suspect]
     Indication: IRON OVERLOAD
  2. EXJADE [Suspect]
     Indication: MYELODYSPLASTIC SYNDROME
     Dosage: 500 MG, DAILY
     Route: 048
     Dates: start: 20100823, end: 20110519

REACTIONS (4)
  - CONJUNCTIVITIS [None]
  - ALOPECIA [None]
  - NAUSEA [None]
  - DIARRHOEA [None]
